FAERS Safety Report 26109338 (Version 2)
Quarter: 2025Q4

REPORT INFORMATION
  Report Type: Report from Study
  Country: US (occurrence: US)
  Receive Date: 20251201
  Receipt Date: 20251212
  Transmission Date: 20260118
  Serious: No
  Sender: MALLINCKRODT
  Company Number: US-MALLINCKRODT-MNK202507449

PATIENT
  Age: 6 Month
  Sex: Male
  Weight: 8 kg

DRUGS (2)
  1. CORTICOTROPIN [Suspect]
     Active Substance: CORTICOTROPIN
     Indication: Infantile spasms
     Route: 030
     Dates: start: 20251108, end: 2025
  2. CORTICOTROPIN [Suspect]
     Active Substance: CORTICOTROPIN
     Dosage: TAPERED
     Dates: start: 2025

REACTIONS (4)
  - Flatulence [Unknown]
  - Irritability [Unknown]
  - Swelling face [Unknown]
  - Constipation [Unknown]

NARRATIVE: CASE EVENT DATE: 20251101
